FAERS Safety Report 6499155-7 (Version None)
Quarter: 2009Q4

REPORT INFORMATION
  Report Type: 
  Country: None (occurrence: None)
  Receive Date: 20091215
  Receipt Date: 20091209
  Transmission Date: 20100525
  Serious: Yes (Death, Other)
  Sender: FDA-Public Use
  Company Number: KR-ELI_LILLY_AND_COMPANY-KR200912002005

PATIENT
  Age: 70 Year
  Sex: Female

DRUGS (1)
  1. HUMALOG MIX 75/25 [Suspect]
     Dosage: 44 IU, UNK
     Dates: start: 20090101

REACTIONS (2)
  - METASTASIS [None]
  - POST PROCEDURAL COMPLICATION [None]
